FAERS Safety Report 15536156 (Version 1)
Quarter: 2018Q4

REPORT INFORMATION
  Report Type: Spontaneous
  Country: US (occurrence: US)
  Receive Date: 20181021
  Receipt Date: 20181021
  Transmission Date: 20190205
  Serious: Yes (Hospitalization)
  Sender: FDA-Public Use
  Company Number: None

PATIENT
  Age: 51 Year
  Sex: Female
  Weight: 103.5 kg

DRUGS (18)
  1. QUNOL LIQUID COQ10 SUPERIOR ABSORPTION [Concomitant]
     Active Substance: DIETARY SUPPLEMENT
  2. CINNAMON. [Concomitant]
     Active Substance: CINNAMON
  3. XYZAL [Concomitant]
     Active Substance: LEVOCETIRIZINE DIHYDROCHLORIDE
  4. ACYCLOVIR. [Concomitant]
     Active Substance: ACYCLOVIR
  5. HAIR-SKIN-NAIL SUPPLEMENT [Concomitant]
  6. CHONDROITIN/GLUCOSAMINE/MMS [Concomitant]
  7. COQ10 [Concomitant]
     Active Substance: UBIDECARENONE
  8. CRANBERRY. [Concomitant]
     Active Substance: CRANBERRY
  9. CITALOPRAM [Concomitant]
     Active Substance: CITALOPRAM HYDROBROMIDE
  10. VERAPAMIL [Concomitant]
     Active Substance: VERAPAMIL HYDROCHLORIDE
  11. BUPROPION HYDROCHLORIDE XL [Concomitant]
     Active Substance: BUPROPION HYDROCHLORIDE
  12. METFORMIN HCL XR [Concomitant]
     Active Substance: METFORMIN HYDROCHLORIDE
  13. NP THYROID [Concomitant]
     Active Substance: LEVOTHYROXINE\LIOTHYRONINE
  14. REPATHA [Suspect]
     Active Substance: EVOLOCUMAB
     Indication: TYPE IIA HYPERLIPIDAEMIA
     Dosage: ?          QUANTITY:1 INJECTION(S);OTHER FREQUENCY:EVERY 2 WEEKS;?
     Route: 058
     Dates: start: 20180909, end: 20180925
  15. PREDNISONE. [Concomitant]
     Active Substance: PREDNISONE
  16. PROAIR HFA [Concomitant]
     Active Substance: ALBUTEROL SULFATE
  17. FISH OIL [Concomitant]
     Active Substance: FISH OIL
  18. WOMEN^S MULTIVIT W/IRON [Concomitant]

REACTIONS (6)
  - Nausea [None]
  - Dehydration [None]
  - Immune system disorder [None]
  - Vomiting [None]
  - Diarrhoea [None]
  - Feeding disorder [None]

NARRATIVE: CASE EVENT DATE: 20180924
